FAERS Safety Report 4877051-6 (Version None)
Quarter: 2005Q4

REPORT INFORMATION
  Report Type: 
  Country: None (occurrence: None)
  Receive Date: 20051206
  Receipt Date: 20050818
  Transmission Date: 20060501
  Serious: No
  Sender: FDA-Public Use
  Company Number: USA0508105652

PATIENT
  Age: 31 Year
  Sex: Female
  Weight: 80 kg

DRUGS (1)
  1. CYMBALTA [Suspect]
     Indication: BACK PAIN
     Dosage: 30 MG
     Dates: start: 20050815

REACTIONS (2)
  - NAUSEA [None]
  - STOMACH DISCOMFORT [None]
